FAERS Safety Report 18321929 (Version 2)
Quarter: 2021Q1

REPORT INFORMATION
  Report Type: Report from Study
  Country: None (occurrence: US)
  Receive Date: 20200929
  Receipt Date: 20210324
  Transmission Date: 20210419
  Serious: Yes (Hospitalization, Other)
  Sender: FDA-Public Use
  Company Number: US-ABBVIE-20K-163-3454487-00

PATIENT
  Sex: Female
  Weight: 102.6 kg

DRUGS (7)
  1. VITAMIN C [Concomitant]
     Active Substance: ASCORBIC ACID
     Indication: SUPPLEMENTATION THERAPY
  2. CALCIUM [Concomitant]
     Active Substance: CALCIUM
     Indication: SUPPLEMENTATION THERAPY
  3. HUMIRA [Suspect]
     Active Substance: ADALIMUMAB
     Indication: COLITIS ULCERATIVE
     Dosage: MORE THAN 2 YEARS AGO
     Route: 058
     Dates: end: 202002
  4. AMLODIPINE [Concomitant]
     Active Substance: AMLODIPINE BESYLATE
     Indication: HYPERTENSION
  5. METOPROLOL. [Concomitant]
     Active Substance: METOPROLOL
     Indication: HYPERTENSION
  6. BIOTIN [Concomitant]
     Active Substance: BIOTIN
     Indication: SUPPLEMENTATION THERAPY
  7. HUMIRA [Suspect]
     Active Substance: ADALIMUMAB
     Dosage: BETWEEN JUNE AND JULY
     Route: 058
     Dates: start: 202006, end: 202012

REACTIONS (21)
  - Facial bones fracture [Recovering/Resolving]
  - Mass [Recovering/Resolving]
  - Fracture [Recovering/Resolving]
  - Procedural haemorrhage [Recovered/Resolved]
  - Arthralgia [Recovered/Resolved]
  - Lower limb fracture [Recovering/Resolving]
  - Eye haematoma [Recovered/Resolved]
  - Unevaluable event [Unknown]
  - Face injury [Unknown]
  - Lip injury [Recovering/Resolving]
  - Skeletal injury [Recovering/Resolving]
  - Lip pain [Recovering/Resolving]
  - Gait disturbance [Recovered/Resolved]
  - Fall [Recovered/Resolved]
  - Lip disorder [Recovering/Resolving]
  - Bone contusion [Not Recovered/Not Resolved]
  - Pruritus [Not Recovered/Not Resolved]
  - Confusional state [Unknown]
  - Pain [Unknown]
  - Arthralgia [Recovering/Resolving]
  - Drooling [Recovering/Resolving]

NARRATIVE: CASE EVENT DATE: 2020
